FAERS Safety Report 4359997-0 (Version None)
Quarter: 2004Q2

REPORT INFORMATION
  Report Type: 
  Country: None (occurrence: None)
  Receive Date: 20040513
  Receipt Date: 20040504
  Transmission Date: 20050107
  Serious: Yes (Other)
  Sender: FDA-Public Use
  Company Number: SE-JNJFOC-20040501184

PATIENT
  Age: 54 Year
  Sex: Male

DRUGS (2)
  1. REMICADE (INFLIXIMAB, RECOMBINANT) LYOPHILIZED POWDER [Suspect]
     Indication: ANKYLOSING SPONDYLITIS
     Dosage: 400 MG, 1 IN 6 WEEK, INTRAVENOUS
     Route: 042
     Dates: start: 20030101
  2. METHOTREXATE [Concomitant]

REACTIONS (6)
  - BETA HAEMOLYTIC STREPTOCOCCAL INFECTION [None]
  - COUGH [None]
  - FEAR [None]
  - PHARYNGOLARYNGEAL PAIN [None]
  - SKIN ULCER [None]
  - STREPTOCOCCAL SEPSIS [None]
